FAERS Safety Report 15274434 (Version 1)
Quarter: 2018Q3

REPORT INFORMATION
  Report Type: Spontaneous
  Country: FR (occurrence: FR)
  Receive Date: 20180814
  Receipt Date: 20180814
  Transmission Date: 20181010
  Serious: Yes (Other)
  Sender: FDA-Public Use
  Company Number: FR-TEVA-2018-FR-940466

PATIENT
  Age: 70 Year
  Sex: Female

DRUGS (13)
  1. FUNGIZONE [Suspect]
     Active Substance: AMPHOTERICIN B
     Route: 065
  2. PANTOPRAZOLE [Concomitant]
     Active Substance: PANTOPRAZOLE
     Route: 065
  3. OGAST [Concomitant]
     Active Substance: LANSOPRAZOLE
     Dosage: EVENING
     Route: 065
  4. IMOVANE [Concomitant]
     Active Substance: ZOPICLONE
     Route: 065
  5. LEXOMIL [Concomitant]
     Active Substance: BROMAZEPAM
     Dosage: 1 EVENING FROM TIME TO TIME
     Route: 065
  6. TRAMADOL. [Concomitant]
     Active Substance: TRAMADOL
     Route: 065
  7. OFLOXACIN. [Suspect]
     Active Substance: OFLOXACIN
     Indication: ABSCESS
     Dosage: 400 MILLIGRAM DAILY;
     Route: 048
     Dates: start: 20170921, end: 20170926
  8. SERESTA [Concomitant]
     Active Substance: OXAZEPAM
     Route: 065
  9. TAHOR [Concomitant]
     Active Substance: ATORVASTATIN CALCIUM
     Route: 065
  10. IXPRIM [Concomitant]
     Active Substance: ACETAMINOPHEN\TRAMADOL HYDROCHLORIDE
     Dosage: 3 DOSAGE FORMS DAILY; MORNING, NOON AND EVENING
     Route: 065
  11. FLUCONAZOLE. [Suspect]
     Active Substance: FLUCONAZOLE
     Route: 048
     Dates: start: 20171012, end: 20171031
  12. SULFARLEM [Concomitant]
     Active Substance: ANETHOLTRITHION
     Dosage: 3 DOSAGE FORMS DAILY; MORNING, NOON AND EVENING
     Route: 065
  13. FORLAX [Concomitant]
     Active Substance: POLYETHYLENE GLYCOL 4000
     Dosage: 2 DOSAGE FORMS DAILY; MORNING
     Route: 065

REACTIONS (4)
  - Swelling face [Unknown]
  - Leukoplakia oral [Recovering/Resolving]
  - Swollen tongue [Unknown]
  - Tongue discolouration [Unknown]

NARRATIVE: CASE EVENT DATE: 20171012
